FAERS Safety Report 7558537-2 (Version None)
Quarter: 2011Q2

REPORT INFORMATION
  Report Type: 
  Country: None (occurrence: None)
  Receive Date: 20110620
  Receipt Date: 20110610
  Transmission Date: 20111010
  Serious: Yes (Hospitalization, Other)
  Sender: FDA-Public Use
  Company Number: FR-BRISTOL-MYERS SQUIBB COMPANY-15828171

PATIENT
  Age: 75 Year
  Sex: Male

DRUGS (9)
  1. LOVENOX [Suspect]
     Indication: ARRHYTHMIA
     Dates: start: 20101224, end: 20110103
  2. NEORECORMON [Suspect]
  3. HYDREA [Suspect]
     Indication: MYELOFIBROSIS
     Route: 048
     Dates: start: 20090601, end: 20101201
  4. CORDARONE [Suspect]
     Indication: ARRHYTHMIA
     Dosage: 5/7 DAYS
     Route: 048
     Dates: start: 20110303, end: 20110415
  5. PREVISCAN [Suspect]
     Indication: ATRIAL FIBRILLATION
  6. PREVISCAN [Suspect]
     Indication: ARRHYTHMIA
  7. LOVENOX [Suspect]
     Indication: ATRIAL FIBRILLATION
     Dates: start: 20101224, end: 20110103
  8. ETOPOSIDE [Suspect]
     Dosage: 1DF=0.5X2. DOSE REDUCED INITIALLY AND LATER DISCONTINUED
     Route: 048
     Dates: start: 20110110, end: 20110328
  9. CORDARONE [Suspect]
     Indication: ATRIAL FIBRILLATION
     Dosage: 5/7 DAYS
     Route: 048
     Dates: start: 20110303, end: 20110415

REACTIONS (7)
  - PULMONARY FIBROSIS [None]
  - ATRIAL FIBRILLATION [None]
  - ANAEMIA [None]
  - PYREXIA [None]
  - COUGH [None]
  - DYSPNOEA [None]
  - NEUTROPENIA [None]
